FAERS Safety Report 23512253 (Version 1)
Quarter: 2024Q1

REPORT INFORMATION
  Report Type: Spontaneous
  Country: JP (occurrence: JP)
  Receive Date: 20240212
  Receipt Date: 20240212
  Transmission Date: 20240409
  Serious: Yes (Hospitalization, Other)
  Sender: FDA-Public Use
  Company Number: JP-aspen-SDZ2023JP038614AA

PATIENT
  Age: 84 Year
  Sex: Female

DRUGS (3)
  1. VALACYCLOVIR [Suspect]
     Active Substance: VALACYCLOVIR HYDROCHLORIDE
     Indication: Herpes simplex viraemia
     Dosage: 3000 MG DIVIDED INTO 3 DOSES
     Route: 048
  2. VALACYCLOVIR [Suspect]
     Active Substance: VALACYCLOVIR HYDROCHLORIDE
     Indication: Herpes zoster
  3. VALACYCLOVIR [Suspect]
     Active Substance: VALACYCLOVIR HYDROCHLORIDE
     Indication: Varicella

REACTIONS (4)
  - Toxic encephalopathy [Recovering/Resolving]
  - Decreased appetite [Unknown]
  - Overdose [Unknown]
  - Drug ineffective [Unknown]
